FAERS Safety Report 23767344 (Version 1)
Quarter: 2024Q2

REPORT INFORMATION
  Report Type: Spontaneous
  Country: US (occurrence: US)
  Receive Date: 20240422
  Receipt Date: 20240422
  Transmission Date: 20240715
  Serious: Yes (Other)
  Sender: FDA-Public Use
  Company Number: US-AMNEAL PHARMACEUTICALS-2023-AMRX-03381

PATIENT
  Sex: Male

DRUGS (1)
  1. WARFARIN SODIUM [Suspect]
     Active Substance: WARFARIN SODIUM
     Indication: Product used for unknown indication
     Dosage: 05 MG TABLET
     Route: 065

REACTIONS (5)
  - Atrial fibrillation [Unknown]
  - Dizziness [Unknown]
  - Palpitations [Unknown]
  - Pain [Unknown]
  - Heart rate irregular [Unknown]
